FAERS Safety Report 15328817 (Version 1)
Quarter: 2018Q3

REPORT INFORMATION
  Report Type: Spontaneous
  Country: PT (occurrence: PT)
  Receive Date: 20180829
  Receipt Date: 20180829
  Transmission Date: 20181010
  Serious: Yes (Death, Other)
  Sender: FDA-Public Use
  Company Number: PT-009507513-2006-137752-NL

PATIENT

DRUGS (1)
  1. IMPLANON [Suspect]
     Active Substance: ETONOGESTREL
     Dosage: UNK
     Route: 064
     Dates: start: 20050905, end: 20051006

REACTIONS (2)
  - Foetal growth restriction [Fatal]
  - Foetal death [Fatal]

NARRATIVE: CASE EVENT DATE: 20060119
